FAERS Safety Report 5803837-7 (Version None)
Quarter: 2008Q3

REPORT INFORMATION
  Report Type: 
  Country: None (occurrence: None)
  Receive Date: 20080708
  Receipt Date: 20080613
  Transmission Date: 20090109
  Serious: No
  Sender: FDA-Public Use
  Company Number: US-BOEHRINGER INGELHEIM GMBH, GERMANY-2008-BP-09339BP

PATIENT
  Sex: Male

DRUGS (8)
  1. FLOMAX [Suspect]
     Indication: URINE FLOW DECREASED
     Dates: start: 20080324
  2. VERAPAMIL [Concomitant]
  3. RAMADINE [Concomitant]
  4. ADVAIR DISKUS 100/50 [Concomitant]
  5. ELAVIL [Concomitant]
  6. HYDROCHLORIDE [Concomitant]
  7. NASPAR NASAL SPRAY [Concomitant]
     Route: 045
  8. ALBUTEROL [Concomitant]
     Indication: ASTHMA

REACTIONS (3)
  - BALANCE DISORDER [None]
  - DIZZINESS [None]
  - FALL [None]
